FAERS Safety Report 21285750 (Version 4)
Quarter: 2022Q4

REPORT INFORMATION
  Report Type: Report from Study
  Country: US (occurrence: US)
  Receive Date: 20220902
  Receipt Date: 20221213
  Transmission Date: 20230113
  Serious: No
  Sender: FDA-Public Use
  Company Number: US-NOVARTISTESTPH-NVSC2022US197894

PATIENT
  Sex: Female

DRUGS (1)
  1. COSENTYX [Suspect]
     Active Substance: SECUKINUMAB
     Indication: Ankylosing spondylitis
     Dosage: 300 MG, QW (QW FOR 5 WEEKS THEN QMO)
     Route: 058
     Dates: start: 202208

REACTIONS (4)
  - Injection site rash [Recovered/Resolved]
  - Device malfunction [Recovered/Resolved]
  - Fatigue [Unknown]
  - Nausea [Not Recovered/Not Resolved]
